FAERS Safety Report 25711958 (Version 1)
Quarter: 2025Q3

REPORT INFORMATION
  Report Type: Spontaneous
  Country: US (occurrence: US)
  Receive Date: 20250821
  Receipt Date: 20250821
  Transmission Date: 20251021
  Serious: Yes (Other)
  Sender: PFIZER
  Company Number: US-PFIZER INC-202500166263

PATIENT
  Age: 30 Year
  Sex: Male

DRUGS (9)
  1. METHYLPREDNISOLONE SODIUM SUCCINATE [Suspect]
     Active Substance: METHYLPREDNISOLONE SODIUM SUCCINATE
     Indication: Asthma
     Dosage: 40 MG, 3X/DAY (EVERY 8 HOURS)
     Route: 042
  2. METHYLPREDNISOLONE SODIUM SUCCINATE [Suspect]
     Active Substance: METHYLPREDNISOLONE SODIUM SUCCINATE
     Indication: Asthmatic crisis
  3. PANCURONIUM BROMIDE [Suspect]
     Active Substance: PANCURONIUM BROMIDE
     Indication: Asthma
  4. PANCURONIUM BROMIDE [Suspect]
     Active Substance: PANCURONIUM BROMIDE
     Indication: Asthmatic crisis
  5. METOCURINE IODIDE [Suspect]
     Active Substance: METOCURINE IODIDE
     Indication: Asthma
     Dosage: 6 MG, 4X/DAY (EVERY 6 HOURS) FOR 3 DOSES
  6. METOCURINE IODIDE [Suspect]
     Active Substance: METOCURINE IODIDE
     Indication: Asthmatic crisis
  7. TERBUTALINE [Concomitant]
     Active Substance: TERBUTALINE
     Indication: Asthma
     Route: 042
  8. TERBUTALINE [Concomitant]
     Active Substance: TERBUTALINE
     Indication: Asthmatic crisis
  9. LORAZEPAM [Concomitant]
     Active Substance: LORAZEPAM

REACTIONS (1)
  - Myopathy [Recovered/Resolved]
